FAERS Safety Report 17518011 (Version 1)
Quarter: 2020Q1

REPORT INFORMATION
  Report Type: Spontaneous
  Country: US (occurrence: US)
  Receive Date: 20200309
  Receipt Date: 20200309
  Transmission Date: 20200409
  Serious: No
  Sender: FDA-Public Use
  Company Number: US-BAYER-2020-041258

PATIENT
  Age: 7 Year
  Sex: Female

DRUGS (2)
  1. CLARITIN [Suspect]
     Active Substance: LORATADINE
     Dosage: 5 ML
     Route: 048
     Dates: start: 20200305, end: 20200305
  2. CLARITIN [Suspect]
     Active Substance: LORATADINE
     Dosage: 10 ML
     Route: 048
     Dates: start: 20200306, end: 20200306

REACTIONS (1)
  - Extra dose administered [Unknown]

NARRATIVE: CASE EVENT DATE: 20200306
